FAERS Safety Report 15621649 (Version 3)
Quarter: 2018Q4

REPORT INFORMATION
  Report Type: Spontaneous
  Country: US (occurrence: US)
  Receive Date: 20181115
  Receipt Date: 20181226
  Transmission Date: 20190205
  Serious: No
  Sender: FDA-Public Use
  Company Number: US-GLAXOSMITHKLINE-US2018201827

PATIENT
  Sex: Female

DRUGS (2)
  1. NICODERM CQ [Suspect]
     Active Substance: NICOTINE
     Indication: PRODUCT USED FOR UNKNOWN INDICATION
     Dosage: 7 MG, UNK
     Dates: start: 20181029
  2. NICODERM CQ [Suspect]
     Active Substance: NICOTINE
     Dosage: 7 MG, UNK

REACTIONS (4)
  - Product use issue [Unknown]
  - Product adhesion issue [Unknown]
  - Product complaint [Unknown]
  - Nicotine dependence [Unknown]
